FAERS Safety Report 12203632 (Version 2)
Quarter: 2016Q3

REPORT INFORMATION
  Report Type: Spontaneous
  Country: FR (occurrence: FR)
  Receive Date: 20160323
  Receipt Date: 20160817
  Transmission Date: 20161109
  Serious: Yes (Other)
  Sender: FDA-Public Use
  Company Number: FR-AUROBINDO-AUR-APL-2016-03747

PATIENT
  Age: 24 Year
  Sex: Male

DRUGS (3)
  1. LAMOTRIGINE ARROW [Suspect]
     Active Substance: LAMOTRIGINE
     Indication: EPILEPSY
     Dosage: 50 MG, DAILY
     Route: 048
     Dates: start: 201602
  2. LAMOTRIGINE ARROW [Suspect]
     Active Substance: LAMOTRIGINE
     Dosage: 100 MG, DAILY
     Route: 065
  3. DEPAKINE CHRONO [Concomitant]
     Active Substance: VALPROATE SODIUM
     Indication: EPILEPSY
     Dosage: 1 DF, DAILY
     Route: 048
     Dates: start: 20150114

REACTIONS (2)
  - Epilepsy [Recovered/Resolved]
  - Product substitution issue [Recovered/Resolved]

NARRATIVE: CASE EVENT DATE: 20160216
